FAERS Safety Report 22262100 (Version 1)
Quarter: 2023Q2

REPORT INFORMATION
  Report Type: Spontaneous
  Country: US (occurrence: US)
  Receive Date: 20230428
  Receipt Date: 20230428
  Transmission Date: 20230721
  Serious: No
  Sender: FDA-Public Use
  Company Number: US-OYSTER POINT PHARMA, INC-US-OYS-23-000119

PATIENT
  Age: 73 Year
  Sex: Female

DRUGS (3)
  1. TYRVAYA [Suspect]
     Active Substance: VARENICLINE TARTRATE
     Indication: Dry eye
     Dosage: 1 DOSAGE FORM, BID
     Route: 045
     Dates: start: 2022, end: 20230129
  2. CEQUA [Concomitant]
     Active Substance: CYCLOSPORINE
     Indication: Product used for unknown indication
     Dosage: UNK, BID
     Route: 065
  3. LOTEMAX [Concomitant]
     Active Substance: LOTEPREDNOL ETABONATE
     Indication: Product used for unknown indication
     Dosage: UNK, QD
     Route: 065

REACTIONS (8)
  - Condition aggravated [Recovering/Resolving]
  - Eye inflammation [Recovering/Resolving]
  - Discomfort [Recovered/Resolved]
  - Facial discomfort [Recovered/Resolved]
  - Balance disorder [Recovered/Resolved]
  - Periorbital swelling [Recovered/Resolved]
  - Head discomfort [Recovered/Resolved]
  - Sneezing [Recovered/Resolved]

NARRATIVE: CASE EVENT DATE: 20230101
